FAERS Safety Report 25314265 (Version 1)
Quarter: 2025Q2

REPORT INFORMATION
  Report Type: Report from Study
  Country: CN (occurrence: CN)
  Receive Date: 20250514
  Receipt Date: 20250514
  Transmission Date: 20250717
  Serious: Yes (Death, Other)
  Sender: JOHNSON AND JOHNSON
  Company Number: CN-JNJFOC-20250508502

PATIENT

DRUGS (1)
  1. ESKETAMINE [Suspect]
     Active Substance: ESKETAMINE
     Indication: Product used for unknown indication

REACTIONS (9)
  - Completed suicide [Fatal]
  - Suspected suicide [Fatal]
  - Suicidal ideation [Unknown]
  - Suicide attempt [Unknown]
  - Depression suicidal [Unknown]
  - Suicide threat [Unknown]
  - Intentional self-injury [Unknown]
  - Intentional overdose [Unknown]
  - Self-injurious ideation [Unknown]
